FAERS Safety Report 12876657 (Version 1)
Quarter: 2016Q4

REPORT INFORMATION
  Report Type: Spontaneous
  Country: US (occurrence: US)
  Receive Date: 20161024
  Receipt Date: 20161024
  Transmission Date: 20170207
  Serious: No
  Sender: FDA-Public Use
  Company Number: None

PATIENT
  Age: 23 Year
  Sex: Female
  Weight: 52.2 kg

DRUGS (2)
  1. MORPHINE SULFATE 2MG/ML ?ERX: 2001002 [Suspect]
     Active Substance: MORPHINE SULFATE
     Indication: POST-TRAUMATIC PAIN
     Route: 042
     Dates: start: 20160311
  2. MORPHINE SULFATE 2MG/ML ?ERX: 2001002 [Suspect]
     Active Substance: MORPHINE SULFATE
     Indication: ROAD TRAFFIC ACCIDENT
     Route: 042
     Dates: start: 20160311

REACTIONS (6)
  - Unresponsive to stimuli [None]
  - Moaning [None]
  - Depressed level of consciousness [None]
  - Joint hyperextension [None]
  - Dyspnoea [None]
  - Blepharospasm [None]

NARRATIVE: CASE EVENT DATE: 20160311
